FAERS Safety Report 4676876-X (Version None)
Quarter: 2005Q2

REPORT INFORMATION
  Report Type: 
  Country: None (occurrence: None)
  Receive Date: 20050527
  Receipt Date: 20050517
  Transmission Date: 20051028
  Serious: Yes (Other)
  Sender: FDA-Public Use
  Company Number: 2005065285

PATIENT
  Age: 84 Year
  Sex: Female
  Weight: 68.0396 kg

DRUGS (1)
  1. XALATAN [Suspect]
     Indication: OCULAR HYPERTENSION
     Dosage: (1 DROP, 1 IN 1 D)
     Dates: start: 20040601

REACTIONS (5)
  - CATARACT [None]
  - CHROMATURIA [None]
  - CONDITION AGGRAVATED [None]
  - FAECES DISCOLOURED [None]
  - NAIL DISCOLOURATION [None]
